FAERS Safety Report 7457319-X (Version None)
Quarter: 2011Q2

REPORT INFORMATION
  Report Type: 
  Country: None (occurrence: None)
  Receive Date: 20110504
  Receipt Date: 20101209
  Transmission Date: 20111010
  Serious: No
  Sender: FDA-Public Use
  Company Number: US-KINGPHARMUSA00001-K201001497

PATIENT
  Sex: Female

DRUGS (2)
  1. AVINZA [Suspect]
     Indication: PAIN
     Dosage: 40 MG, 3-5 CAPSULES QD
     Dates: start: 20040101, end: 20040101
  2. OXYCODONE [Concomitant]
     Indication: BREAKTHROUGH PAIN
     Dosage: UNK

REACTIONS (1)
  - DYSPNOEA [None]
